FAERS Safety Report 6437767-7 (Version None)
Quarter: 2009Q4

REPORT INFORMATION
  Report Type: 
  Country: None (occurrence: None)
  Receive Date: 20091109
  Receipt Date: 20081210
  Transmission Date: 20100525
  Serious: Yes (Other)
  Sender: FDA-Public Use
  Company Number: 08-093

PATIENT
  Age: 66 Year
  Sex: Female

DRUGS (5)
  1. CARISOPRODOL [Suspect]
     Indication: NECK PAIN
     Dosage: ONE P.O. 3 TIMES A DAY
     Route: 048
     Dates: start: 20081001
  2. ATIVAN [Concomitant]
  3. XANAX [Concomitant]
  4. NEUVONTIN [Concomitant]
  5. CYMBALTA [Concomitant]

REACTIONS (1)
  - TACHYCARDIA [None]
